FAERS Safety Report 5152501-9 (Version None)
Quarter: 2006Q4

REPORT INFORMATION
  Report Type: 
  Country: None (occurrence: None)
  Receive Date: 20061109
  Receipt Date: 20061025
  Transmission Date: 20070319
  Serious: Yes (Other)
  Sender: FDA-Public Use
  Company Number: 2006IE003404

PATIENT
  Age: 38 Year
  Sex: Female

DRUGS (7)
  1. ALOXI [Suspect]
     Indication: PROPHYLAXIS OF NAUSEA AND VOMITING
     Dosage: INTRAVENOUS
     Route: 042
  2. MABTHERA                        (RITUXIMAB) [Suspect]
     Indication: DRUG USE FOR UNKNOWN INDICATION
     Dosage: INTRAVENOUS
     Route: 042
  3. CYCLOPHOSPHAMIDE [Suspect]
  4. VINCRISTINE SULFATE [Suspect]
  5. DOXORUBICIN HCL [Suspect]
     Dosage: INFUSION
  6. RITUXIMAB                                                     (RITUXIM [Suspect]
  7. PREDNISONE TAB [Suspect]

REACTIONS (2)
  - ABORTION MISSED [None]
  - DRUG EXPOSURE DURING PREGNANCY [None]
